FAERS Safety Report 26110536 (Version 1)
Quarter: 2025Q4

REPORT INFORMATION
  Report Type: Spontaneous
  Country: BR (occurrence: BR)
  Receive Date: 20251202
  Receipt Date: 20251202
  Transmission Date: 20260118
  Serious: Yes (Hospitalization, Other)
  Sender: SANDOZ
  Company Number: BR-SANDOZ-SDZ2025BR088859

PATIENT
  Sex: Male

DRUGS (2)
  1. INDAPAMIDE [Suspect]
     Active Substance: INDAPAMIDE
     Indication: Hypertension
     Dosage: 1.5 MG
     Route: 065
     Dates: start: 20250410
  2. LOSARTAN POTASSIUM [Suspect]
     Active Substance: LOSARTAN POTASSIUM
     Indication: Hypertension
     Dosage: 50 MG, Q12H
     Route: 048

REACTIONS (2)
  - Nephrolithiasis [Unknown]
  - Nephrectomy [Unknown]
